FAERS Safety Report 7647901-9 (Version None)
Quarter: 2011Q3

REPORT INFORMATION
  Report Type: 
  Country: None (occurrence: None)
  Receive Date: 20110801
  Receipt Date: 20110728
  Transmission Date: 20111222
  Serious: Yes (Hospitalization)
  Sender: FDA-Public Use
  Company Number: DE-ABBOTT-11P-062-0842292-00

PATIENT
  Sex: Female

DRUGS (5)
  1. EVISTA [Concomitant]
     Indication: PRODUCT USED FOR UNKNOWN INDICATION
  2. ZINK [Concomitant]
     Indication: PRODUCT USED FOR UNKNOWN INDICATION
  3. VITAMIN D [Concomitant]
     Indication: PRODUCT USED FOR UNKNOWN INDICATION
  4. PROGRAF [Concomitant]
     Indication: PRODUCT USED FOR UNKNOWN INDICATION
  5. HUMIRA [Suspect]
     Indication: ANKYLOSING SPONDYLITIS
     Route: 058
     Dates: start: 20071102, end: 20110301

REACTIONS (3)
  - ANORECTAL OPERATION [None]
  - COLOSTOMY [None]
  - SEPSIS [None]
